FAERS Safety Report 11562756 (Version 1)
Quarter: 2015Q3

REPORT INFORMATION
  Report Type: Spontaneous
  Country: US (occurrence: US)
  Receive Date: 20150916
  Receipt Date: 20150916
  Transmission Date: 20151125
  Serious: Yes (Hospitalization, Other)
  Sender: FDA-Public Use
  Company Number: US-ELI_LILLY_AND_COMPANY-US200812005711

PATIENT
  Sex: Female

DRUGS (8)
  1. VITAMINS NOS [Concomitant]
     Active Substance: VITAMINS
  2. PREDNISONE. [Concomitant]
     Active Substance: PREDNISONE
  3. METHOTREXATE [Concomitant]
     Active Substance: METHOTREXATE
  4. KEPPRA [Concomitant]
     Active Substance: LEVETIRACETAM
  5. FORTEO [Suspect]
     Active Substance: TERIPARATIDE
     Indication: OSTEOPOROSIS
     Dates: start: 2007
  6. FOLIC ACID. [Concomitant]
     Active Substance: FOLIC ACID
  7. VITAMIN D [Concomitant]
     Active Substance: CHOLECALCIFEROL
     Dosage: LARGE DOSE
  8. FORTEO [Suspect]
     Active Substance: TERIPARATIDE

REACTIONS (2)
  - Pneumonia [Recovered/Resolved]
  - Cough [Recovered/Resolved]
